FAERS Safety Report 5565375-9 (Version None)
Quarter: 2007Q4

REPORT INFORMATION
  Report Type: 
  Country: None (occurrence: None)
  Receive Date: 20071218
  Receipt Date: 20050120
  Transmission Date: 20080405
  Serious: Yes (Death, Hospitalization)
  Sender: FDA-Public Use
  Company Number: DE-ROCHE-393054

PATIENT
  Sex: Male

DRUGS (1)
  1. XELODA [Suspect]
     Route: 065
     Dates: start: 20041201

REACTIONS (4)
  - DEATH [None]
  - HEPATIC FAILURE [None]
  - ILEUS PARALYTIC [None]
  - RENAL FAILURE [None]
